FAERS Safety Report 5734508-3 (Version None)
Quarter: 2008Q2

REPORT INFORMATION
  Report Type: 
  Country: None (occurrence: None)
  Receive Date: 20080508
  Receipt Date: 20080508
  Transmission Date: 20081010
  Serious: Yes (Other)
  Sender: FDA-Public Use
  Company Number: None

PATIENT
  Age: 50 Year
  Sex: Female
  Weight: 72.5755 kg

DRUGS (1)
  1. CREST PRO HEALTH RINSE PROCTER + GAMBLE [Suspect]
     Dates: start: 20080210, end: 20080401

REACTIONS (1)
  - TOOTH DISCOLOURATION [None]
